FAERS Safety Report 5239094-2 (Version None)
Quarter: 2007Q1

REPORT INFORMATION
  Report Type: 
  Country: None (occurrence: None)
  Receive Date: 20070209
  Receipt Date: 20070129
  Transmission Date: 20070707
  Serious: Yes (Hospitalization)
  Sender: FDA-Public Use
  Company Number: 2007-016DP

PATIENT
  Age: 20 Year
  Sex: Male

DRUGS (1)
  1. NAPROXEN SODIUM [Suspect]
     Indication: DRUG USE FOR UNKNOWN INDICATION
     Dosage: 10X550MG, ORAL
     Route: 048

REACTIONS (3)
  - ABDOMINAL PAIN UPPER [None]
  - INCORRECT DOSE ADMINISTERED [None]
  - SUICIDE ATTEMPT [None]
